FAERS Safety Report 7114271-4 (Version None)
Quarter: 2010Q4

REPORT INFORMATION
  Report Type: 
  Country: None (occurrence: None)
  Receive Date: 20101119
  Receipt Date: 20101109
  Transmission Date: 20110411
  Serious: Yes (Hospitalization)
  Sender: FDA-Public Use
  Company Number: PHHY2010JP76061

PATIENT
  Age: 65 Year
  Sex: Female

DRUGS (1)
  1. LAMISIL [Suspect]
     Dosage: 125 MG/DAY
     Route: 048
     Dates: start: 20100619

REACTIONS (5)
  - GALLBLADDER DISORDER [None]
  - LIVER DISORDER [None]
  - PAPULE [None]
  - PLASMAPHERESIS [None]
  - URINE COLOUR ABNORMAL [None]
